FAERS Safety Report 7071218-7 (Version None)
Quarter: 2010Q4

REPORT INFORMATION
  Report Type: 
  Country: None (occurrence: None)
  Receive Date: 20101029
  Receipt Date: 20101019
  Transmission Date: 20110411
  Serious: Yes (Other)
  Sender: FDA-Public Use
  Company Number: CA-JNJFOC-20101005652

PATIENT
  Sex: Male
  Weight: 76.5 kg

DRUGS (2)
  1. REMICADE [Suspect]
     Indication: CROHN'S DISEASE
     Dosage: TOTAL 10 INFUSIONS
     Route: 042
  2. REMICADE [Suspect]
     Dosage: TOTAL 8 INFUSIONS
     Route: 042

REACTIONS (3)
  - ILEECTOMY [None]
  - NAUSEA [None]
  - VOMITING [None]
